FAERS Safety Report 16209980 (Version 1)
Quarter: 2019Q2

REPORT INFORMATION
  Report Type: Spontaneous
  Country: US (occurrence: US)
  Receive Date: 20190417
  Receipt Date: 20190417
  Transmission Date: 20190711
  Serious: Yes (Death)
  Sender: FDA-Public Use
  Company Number: US-VIFOR (INTERNATIONAL) INC.-VIT-2019-03610

PATIENT
  Age: 79 Year
  Sex: Male

DRUGS (10)
  1. MULTIVITAMIN [Concomitant]
     Active Substance: VITAMINS
  2. ATENOLOL. [Concomitant]
     Active Substance: ATENOLOL
  3. TAMSULOSIN [Concomitant]
     Active Substance: TAMSULOSIN
  4. GLIPIZIDE. [Concomitant]
     Active Substance: GLIPIZIDE
  5. PRAVASTATIN. [Concomitant]
     Active Substance: PRAVASTATIN
  6. VELTASSA [Suspect]
     Active Substance: PATIROMER
     Indication: HYPERKALAEMIA
     Dates: start: 20180918
  7. BABY ASPIRIN [Concomitant]
     Active Substance: ASPIRIN
  8. FERROUS SULFATE. [Concomitant]
     Active Substance: FERROUS SULFATE
  9. HUMALOG KWIKPEN [Concomitant]
     Active Substance: INSULIN LISPRO
  10. LANTUS SOLOSTAR [Concomitant]
     Active Substance: INSULIN GLARGINE

REACTIONS (1)
  - Death [Fatal]

NARRATIVE: CASE EVENT DATE: 20190412
